FAERS Safety Report 5989770-9 (Version None)
Quarter: 2008Q4

REPORT INFORMATION
  Report Type: 
  Country: None (occurrence: None)
  Receive Date: 20081209
  Receipt Date: 20081203
  Transmission Date: 20090506
  Serious: Yes (Other)
  Sender: FDA-Public Use
  Company Number: 2008SP024459

PATIENT
  Age: 32 Year
  Sex: Female

DRUGS (3)
  1. CLARITYNE (LORATIDINE) (LORATIDINE) [Suspect]
     Indication: CONJUNCTIVITIS ALLERGIC
     Dosage: 10 MG; QD; PO
     Route: 048
     Dates: start: 20070926, end: 20071002
  2. THIOVALONE (THIOVALONE 0263501/) [Suspect]
     Indication: CONJUNCTIVITIS ALLERGIC
     Dosage: 6 DF; QD; BUCC
     Route: 002
     Dates: start: 20070925, end: 20071002
  3. BECLO RHINO (BECLOMETASONE DIPROPIONATE) [Suspect]
     Indication: CONJUNCTIVITIS ALLERGIC
     Dosage: 6 DF; QD; NAS
     Route: 045
     Dates: start: 20070925, end: 20071002

REACTIONS (2)
  - ABORTION SPONTANEOUS [None]
  - DRUG EXPOSURE DURING PREGNANCY [None]
